FAERS Safety Report 18803514 (Version 3)
Quarter: 2023Q1

REPORT INFORMATION
  Report Type: Spontaneous
  Country: GB (occurrence: GB)
  Receive Date: 20210128
  Receipt Date: 20230110
  Transmission Date: 20230418
  Serious: Yes (Other)
  Sender: FDA-Public Use
  Company Number: GB-VERTEX PHARMACEUTICALS-2021-000937

PATIENT
  Sex: Female

DRUGS (42)
  1. ELEXACAFTOR\IVACAFTOR\TEZACAFTOR [Suspect]
     Active Substance: ELEXACAFTOR\IVACAFTOR\TEZACAFTOR
     Indication: Cystic fibrosis
     Dosage: 2 OM
     Route: 048
     Dates: start: 20200821
  2. KALYDECO [Suspect]
     Active Substance: IVACAFTOR
     Indication: Cystic fibrosis
     Dosage: 1 ON
     Route: 048
     Dates: start: 20200821
  3. COLISTIMETHATE SODIUM [Concomitant]
     Active Substance: COLISTIMETHATE SODIUM
     Dosage: 1.66MU BD
  4. AZTREONAM [Concomitant]
     Active Substance: AZTREONAM
     Dosage: 75MG TDS ALT MONTHS
  5. AZITHROMYCIN [Concomitant]
     Active Substance: AZITHROMYCIN
     Dosage: 500MG ALT DAYS
  6. DORNASE ALFA [Concomitant]
     Active Substance: DORNASE ALFA
     Dosage: 2.5MG OD
  7. SODIUM CHLORIDE [Concomitant]
     Active Substance: SODIUM CHLORIDE
     Dosage: 7% NEBS OD PRN
  8. TERBUTALINE [Concomitant]
     Active Substance: TERBUTALINE
     Dosage: 500 INHALER - PRN
  9. PULMICORT TURBUHALER [Concomitant]
     Active Substance: BUDESONIDE
     Dosage: 200 TT BD
  10. MENADIOL [Concomitant]
     Active Substance: MENADIOL
     Dosage: 10MG OD
  11. FOLIC ACID\IRON\MINERALS\VITAMINS [Concomitant]
     Active Substance: FOLIC ACID\IRON\MINERALS\VITAMINS
  12. CHOLECALCIFEROL [Concomitant]
     Active Substance: CHOLECALCIFEROL
     Dosage: 800UNITS 3 OD
  13. VITAMIN E [Concomitant]
     Active Substance: .ALPHA.-TOCOPHEROL
     Dosage: 200UNITS OD
  14. VITAMIN B [Concomitant]
     Active Substance: VITAMIN B
     Dosage: 1 OD
  15. LINAGLIPTIN [Concomitant]
     Active Substance: LINAGLIPTIN
     Dosage: 5MG OD
  16. NUTRIZYM 22 [Concomitant]
     Dosage: PRN
  17. GAVISCON [Concomitant]
     Active Substance: ALUMINUM HYDROXIDE\MAGNESIUM CARBONATE
     Dosage: PRN
  18. LANSOPRAZOLE [Concomitant]
     Active Substance: LANSOPRAZOLE
     Dosage: 30MG OD
  19. GASTROGRAFIN [Concomitant]
     Active Substance: DIATRIZOATE MEGLUMINE\DIATRIZOATE SODIUM
     Dosage: 100ML PRN (4 A MONTH)
  20. SENNA [Concomitant]
     Active Substance: SENNA LEAF\SENNOSIDES\SENNOSIDES A AND B
     Dosage: 7.5MG 3 TABS BD
  21. DOCUSATE SODIUM [Concomitant]
     Active Substance: DOCUSATE SODIUM
     Dosage: 100MG TDS PRN
  22. PRUCALOPRIDE [Concomitant]
     Active Substance: PRUCALOPRIDE
     Dosage: 2 MG OD
  23. PICOLAX [Concomitant]
     Dosage: PRN
  24. FEXOFENADINE [Concomitant]
     Active Substance: FEXOFENADINE HYDROCHLORIDE
     Dosage: 120MG OD
  25. HYDROCORTISONE [Concomitant]
     Active Substance: HYDROCORTISONE
     Dosage: PRN
  26. ZOPICLONE [Concomitant]
     Active Substance: ZOPICLONE
     Dosage: 3.75MG PRN
  27. DIAZEPAM [Concomitant]
     Active Substance: DIAZEPAM
     Dosage: 2MG 1 -2 PRN
  28. VISCOTEARS EYE DROPS [Concomitant]
     Dosage: PRN
  29. LACRILUBE EYE DROPS [Concomitant]
     Dosage: PRN
  30. SODIUM CHLORIDE [Concomitant]
     Active Substance: SODIUM CHLORIDE
     Dosage: PRN
  31. LEVOTHYROXINE [Concomitant]
     Active Substance: LEVOTHYROXINE
     Dosage: 50MCG OD
  32. ETORICOXIB [Concomitant]
     Active Substance: ETORICOXIB
     Dosage: 90MG OD
  33. IBUPROFEN [Concomitant]
     Active Substance: IBUPROFEN
     Dosage: 10% PRN
  34. BUTRANS [Concomitant]
     Active Substance: BUPRENORPHINE
     Dosage: 5MCG/HOUR
  35. ACETAMINOPHEN [Concomitant]
     Active Substance: ACETAMINOPHEN
     Dosage: 500MG - 1G QDS
  36. CO-DYDRAMOL [Concomitant]
     Active Substance: ACETAMINOPHEN\DIHYDROCODEINE
     Dosage: 10/500 TABS - 1-2 PRN
  37. COCODAMOL [Concomitant]
     Active Substance: ACETAMINOPHEN\CODEINE PHOSPHATE
     Dosage: 30/500 PRN
  38. TRAMADOL [Concomitant]
     Active Substance: TRAMADOL
     Dosage: 50MG 1-2 PRN
  39. MAGNESIUM GLYCEROPHOSPHATE [Concomitant]
     Active Substance: MAGNESIUM GLYCEROPHOSPHATE
     Dosage: 1 OD
  40. ESTRADIOL [Concomitant]
     Active Substance: ESTRADIOL
     Dosage: 1.5 PUMPS / DAY
  41. SULFAMETHOXAZOLE\TRIMETHOPRIM [Concomitant]
     Active Substance: SULFAMETHOXAZOLE\TRIMETHOPRIM
     Dosage: 960MG BD
  42. MOVICOL [Concomitant]
     Active Substance: POLYETHYLENE GLYCOL 3350\POTASSIUM CHLORIDE\SODIUM BICARBONATE\SODIUM CHLORIDE

REACTIONS (1)
  - Breast cancer [Not Recovered/Not Resolved]

NARRATIVE: CASE EVENT DATE: 20200101
